FAERS Safety Report 21493499 (Version 1)
Quarter: 2022Q4

REPORT INFORMATION
  Report Type: Spontaneous
  Country: US (occurrence: US)
  Receive Date: 20221021
  Receipt Date: 20221021
  Transmission Date: 20230113
  Serious: Yes (Other)
  Sender: FDA-Public Use
  Company Number: US-009507513-2210USA004715

PATIENT
  Age: 45 Year
  Sex: Male

DRUGS (2)
  1. TEMODAR [Suspect]
     Active Substance: TEMOZOLOMIDE
     Indication: Gliosarcoma
     Dosage: UNK
     Route: 048
     Dates: start: 20210118, end: 20210226
  2. TEMODAR [Suspect]
     Active Substance: TEMOZOLOMIDE
     Dosage: ADJUVANT
     Route: 048
     Dates: start: 20210322, end: 20210923

REACTIONS (2)
  - Malignant neoplasm progression [Unknown]
  - Seizure [Unknown]

NARRATIVE: CASE EVENT DATE: 20210301
